FAERS Safety Report 5837959-1 (Version None)
Quarter: 2008Q3

REPORT INFORMATION
  Report Type: 
  Country: None (occurrence: None)
  Receive Date: 20080808
  Receipt Date: 20071219
  Transmission Date: 20090109
  Serious: No
  Sender: FDA-Public Use
  Company Number: A0699775A

PATIENT
  Age: 53 Year
  Sex: Female

DRUGS (8)
  1. PAXIL [Suspect]
     Indication: DEPRESSION
     Dosage: 60MG PER DAY
     Route: 048
  2. REBIF [Concomitant]
  3. DIGOXIN [Concomitant]
  4. PARLODEL [Concomitant]
  5. BLOOD PRESSURE MEDICATION [Concomitant]
  6. ALLEGRA [Concomitant]
  7. ALLERGY SHOT [Concomitant]
  8. ALLERGY SHOTS [Concomitant]

REACTIONS (3)
  - BREAST PAIN [None]
  - FEELING HOT [None]
  - WEIGHT INCREASED [None]
